FAERS Safety Report 7312602-3 (Version None)
Quarter: 2011Q1

REPORT INFORMATION
  Report Type: 
  Country: None (occurrence: None)
  Receive Date: 20110224
  Receipt Date: 20100125
  Transmission Date: 20110831
  Serious: No
  Sender: FDA-Public Use
  Company Number: US-MYLANLABS-2010S1001406

PATIENT
  Age: 69 Year
  Sex: Male
  Weight: 74.84 kg

DRUGS (2)
  1. QUINAPRIL [Concomitant]
     Indication: HYPERTENSION
  2. ATENOLOL [Suspect]
     Indication: HYPERTENSION

REACTIONS (4)
  - DRY MOUTH [None]
  - CONSTIPATION [None]
  - PERIPHERAL COLDNESS [None]
  - CONTUSION [None]
